FAERS Safety Report 23383950 (Version 1)
Quarter: 2024Q1

REPORT INFORMATION
  Report Type: Spontaneous
  Country: FR (occurrence: FR)
  Receive Date: 20240109
  Receipt Date: 20240109
  Transmission Date: 20240410
  Serious: Yes (Hospitalization)
  Sender: FDA-Public Use
  Company Number: FR-ELI_LILLY_AND_COMPANY-FR202401003963

PATIENT
  Age: 77 Year
  Sex: Male

DRUGS (8)
  1. FLUOXETINE HYDROCHLORIDE [Suspect]
     Active Substance: FLUOXETINE HYDROCHLORIDE
     Indication: Depression
     Dosage: UNK, UNKNOWN
     Route: 065
     Dates: start: 20230904, end: 20230912
  2. MORPHINE SULFATE [Suspect]
     Active Substance: MORPHINE SULFATE
     Indication: Gait disturbance
     Dosage: UUNK, UNKNOWN
     Route: 065
     Dates: start: 20230907, end: 20230911
  3. AMOXICILLIN [Suspect]
     Active Substance: AMOXICILLIN
     Indication: Intervertebral discitis
     Dosage: 12 G, DAILY
     Route: 065
     Dates: start: 20230911, end: 20230916
  4. AMOXICILLIN [Suspect]
     Active Substance: AMOXICILLIN
     Dosage: 12 G, DAILY
     Route: 065
     Dates: start: 20230916, end: 20230920
  5. FENTANYL [Suspect]
     Active Substance: FENTANYL\FENTANYL CITRATE
     Indication: Gait disturbance
     Dosage: UUNK, UNKNOWN
     Route: 065
     Dates: start: 20230904, end: 20230910
  6. OXAZEPAM [Suspect]
     Active Substance: OXAZEPAM
     Indication: Anxiolytic therapy
     Dosage: 10 MG, UNKNOWN
     Route: 065
     Dates: start: 20230905, end: 20230919
  7. CEFTRIAXONE [Suspect]
     Active Substance: CEFTRIAXONE\CEFTRIAXONE SODIUM
     Indication: Intervertebral discitis
     Dosage: 4 G, DAILY
     Route: 065
     Dates: start: 20230911, end: 20230919
  8. PAROXETINE [Suspect]
     Active Substance: PAROXETINE
     Indication: Depression
     Dosage: UUNK, UNKNOWN
     Route: 065
     Dates: start: 20230913, end: 20230916

REACTIONS (1)
  - Encephalopathy [Not Recovered/Not Resolved]

NARRATIVE: CASE EVENT DATE: 20230911
